FAERS Safety Report 22040563 (Version 1)
Quarter: 2023Q1

REPORT INFORMATION
  Report Type: Report from Study
  Country: US (occurrence: US)
  Receive Date: 20230227
  Receipt Date: 20230227
  Transmission Date: 20230417
  Serious: Yes (Other)
  Sender: FDA-Public Use
  Company Number: US-PFIZER INC-PV202300034147

PATIENT
  Sex: Female

DRUGS (6)
  1. DOXORUBICIN HYDROCHLORIDE [Suspect]
     Active Substance: DOXORUBICIN HYDROCHLORIDE
     Indication: Triple negative breast cancer
     Dosage: 60 MG/M2, CYCLIC (60 MG/M2, EVERY 2 WEEKS FOR 8 WEEKS)
     Route: 042
  2. PACLITAXEL [Suspect]
     Active Substance: PACLITAXEL
     Indication: Triple negative breast cancer
     Dosage: 80 MG/M2, CYCLIC (80 MG/M2, WEEKLY FOR 12 WEEKS)
     Route: 042
  3. CYCLOPHOSPHAMIDE [Suspect]
     Active Substance: CYCLOPHOSPHAMIDE
     Indication: Triple negative breast cancer
     Dosage: 600 MG/M2, CYCLIC (600 MG/M2, EVERY 2 WEEKS FOR 8 WEEKS)
     Route: 042
  4. TALIMOGENE LAHERPAREPVEC [Concomitant]
     Active Substance: TALIMOGENE LAHERPAREPVEC
     Indication: Triple negative breast cancer
     Dosage: UNK, CYCLIC (10*6 PFUS ON WEEK 1)
  5. TALIMOGENE LAHERPAREPVEC [Concomitant]
     Active Substance: TALIMOGENE LAHERPAREPVEC
     Dosage: UNK, CYCLIC UNK (10*8  PFU DOSES INJECTED ON WEEKS 4, 6, 8 AND 10)
  6. PEGFILGRASTIM [Concomitant]
     Active Substance: PEGFILGRASTIM
     Indication: Triple negative breast cancer
     Dosage: UNK

REACTIONS (1)
  - Pulmonary embolism [Unknown]
